FAERS Safety Report 23382586 (Version 1)
Quarter: 2024Q1

REPORT INFORMATION
  Report Type: Spontaneous
  Country: US (occurrence: US)
  Receive Date: 20240109
  Receipt Date: 20240109
  Transmission Date: 20240409
  Serious: No
  Sender: FDA-Public Use
  Company Number: US-GALDERMA-US2023019963

PATIENT

DRUGS (1)
  1. DIFFERIN GEL [Suspect]
     Active Substance: ADAPALENE
     Indication: Rash macular
     Route: 061

REACTIONS (4)
  - Rash [Recovered/Resolved]
  - Dry skin [Recovered/Resolved]
  - Urticaria [Recovered/Resolved]
  - Product use in unapproved indication [Recovered/Resolved]
